FAERS Safety Report 21836845 (Version 2)
Quarter: 2023Q1

REPORT INFORMATION
  Report Type: Spontaneous
  Country: US (occurrence: US)
  Receive Date: 20230109
  Receipt Date: 20230123
  Transmission Date: 20230417
  Serious: Yes (Hospitalization)
  Sender: FDA-Public Use
  Company Number: US-BRISTOL-MYERS SQUIBB COMPANY-2023-002688

PATIENT
  Age: 79 Year
  Sex: Female
  Weight: 76.20 kg

DRUGS (1)
  1. REVLIMID [Suspect]
     Active Substance: LENALIDOMIDE
     Indication: Plasma cell myeloma
     Route: 048

REACTIONS (4)
  - Oxygen saturation decreased [Unknown]
  - Hypotension [Unknown]
  - Skin lesion [Unknown]
  - Muscular weakness [Unknown]
